FAERS Safety Report 9549478 (Version 1)
Quarter: 2013Q3

REPORT INFORMATION
  Report Type: Spontaneous
  Country: US (occurrence: US)
  Receive Date: 20130924
  Receipt Date: 20130924
  Transmission Date: 20140515
  Serious: Yes (Other)
  Sender: FDA-Public Use
  Company Number: CHPA2013US014397

PATIENT
  Age: 90 Year
  Sex: Male

DRUGS (2)
  1. ASCRIPTIN BUFFERED CAPS UNKNOWN FORMULA [Suspect]
     Indication: COAGULOPATHY
     Dosage: 1 DF, BID
     Route: 048
  2. ACETYLSALICYLIC ACID [Suspect]
     Dosage: UNK, UNK
     Route: 065

REACTIONS (4)
  - Renal failure chronic [Unknown]
  - Memory impairment [Unknown]
  - Feeling abnormal [Unknown]
  - Off label use [Unknown]
